FAERS Safety Report 5841893-0 (Version None)
Quarter: 2008Q3

REPORT INFORMATION
  Report Type: 
  Country: None (occurrence: None)
  Receive Date: 20080811
  Receipt Date: 20080811
  Transmission Date: 20090109
  Serious: No
  Sender: FDA-Public Use
  Company Number: None

PATIENT
  Age: 43 Year
  Sex: Female
  Weight: 77.1115 kg

DRUGS (1)
  1. DEPAKOTE [Suspect]
     Dosage: 2 TABS EVERY 12 HOURS PO
     Route: 048
     Dates: start: 20080710, end: 20080730

REACTIONS (2)
  - AMNESIA [None]
  - VISUAL ACUITY REDUCED [None]
